FAERS Safety Report 8101753-1 (Version None)
Quarter: 2012Q1

REPORT INFORMATION
  Report Type: 
  Country: None (occurrence: None)
  Receive Date: 20120131
  Receipt Date: 20120117
  Transmission Date: 20120608
  Serious: Yes (Other)
  Sender: FDA-Public Use
  Company Number: PHHY2012BR004515

PATIENT
  Age: 63 Year
  Sex: Female

DRUGS (2)
  1. HYDROXYCHLOROQUINE SULFATE [Concomitant]
  2. FORMOTEROL FUMARATE [Suspect]
     Indication: HYPERSENSITIVITY

REACTIONS (6)
  - BRONCHOSPASM [None]
  - PRODUCTIVE COUGH [None]
  - INFLAMMATION OF WOUND [None]
  - ERYTHEMA [None]
  - ASPHYXIA [None]
  - WOUND [None]
